FAERS Safety Report 8504333-9 (Version None)
Quarter: 2012Q3

REPORT INFORMATION
  Report Type: 
  Country: None (occurrence: None)
  Receive Date: 20120711
  Receipt Date: 20120706
  Transmission Date: 20120928
  Serious: Yes (Hospitalization)
  Sender: FDA-Public Use
  Company Number: US-GILEAD-2012-0055300

PATIENT
  Sex: Female

DRUGS (2)
  1. OXYGEN [Concomitant]
  2. LETAIRIS [Suspect]
     Indication: PRODUCT USED FOR UNKNOWN INDICATION
     Dosage: 5 MG, UNK
     Route: 048
     Dates: start: 20080731

REACTIONS (11)
  - UNEVALUABLE EVENT [None]
  - DYSPNOEA [None]
  - ABDOMINAL DISCOMFORT [None]
  - WEIGHT DECREASED [None]
  - DIABETES MELLITUS [None]
  - INTESTINAL PROLAPSE [None]
  - SCLERODERMA [None]
  - OESOPHAGEAL DISORDER [None]
  - PNEUMONIA [None]
  - IMMUNE SYSTEM DISORDER [None]
  - SMALL INTESTINAL OBSTRUCTION [None]
